FAERS Safety Report 6946100-3 (Version None)
Quarter: 2010Q3

REPORT INFORMATION
  Report Type: 
  Country: None (occurrence: None)
  Receive Date: 20100827
  Receipt Date: 20100819
  Transmission Date: 20110219
  Serious: Yes (Hospitalization)
  Sender: FDA-Public Use
  Company Number: DE-ABBOTT-10P-062-0630024-00

PATIENT
  Sex: Female

DRUGS (2)
  1. ENANTONE DEPOT INJECTION [Suspect]
     Indication: UTERINE LEIOMYOMA
     Route: 030
     Dates: start: 20090916, end: 20091210
  2. FEMOSTON [Concomitant]
     Indication: UTERINE LEIOMYOMA
     Dosage: 2/10 MG
     Dates: start: 20091217, end: 20100115

REACTIONS (1)
  - UTERINE HAEMORRHAGE [None]
